FAERS Safety Report 6972755-3 (Version None)
Quarter: 2010Q3

REPORT INFORMATION
  Report Type: 
  Country: None (occurrence: None)
  Receive Date: 20100909
  Receipt Date: 20100902
  Transmission Date: 20110219
  Serious: Yes (Other)
  Sender: FDA-Public Use
  Company Number: US-BAYER-201019741BCC

PATIENT
  Age: 62 Year
  Sex: Female
  Weight: 101 kg

DRUGS (10)
  1. ALEVE (CAPLET) [Suspect]
     Indication: HEADACHE
     Dosage: TOTAL DAILY DOSE: 880 MG  UNIT DOSE: 220 MG
     Route: 048
     Dates: end: 20100801
  2. ATENOLOL [Concomitant]
     Route: 065
  3. LISINOPRIL [Concomitant]
     Route: 065
  4. SIMVASTATIN [Concomitant]
     Route: 065
  5. RANITIDINE [Concomitant]
     Route: 065
  6. METOPROLOL TARTRATE [Concomitant]
     Route: 065
  7. GABAPENTIN [Concomitant]
     Route: 065
  8. HYDROXYZINE [Concomitant]
     Route: 065
  9. CENTRUM SILVER [Concomitant]
     Route: 065
  10. VITAMIN D [Concomitant]
     Route: 065

REACTIONS (2)
  - BLOOD TEST ABNORMAL [None]
  - NEPHROPATHY [None]
